FAERS Safety Report 19849899 (Version 3)
Quarter: 2022Q3

REPORT INFORMATION
  Report Type: Spontaneous
  Country: US (occurrence: US)
  Receive Date: 20210917
  Receipt Date: 20220930
  Transmission Date: 20221026
  Serious: Yes (Other)
  Sender: FDA-Public Use
  Company Number: US-CATALYST PHARMACEUTICALS, INC-2021CAT00205

PATIENT
  Sex: Female
  Weight: 79.365 kg

DRUGS (51)
  1. FIRDAPSE [Suspect]
     Active Substance: AMIFAMPRIDINE PHOSPHATE
     Indication: Myasthenic syndrome
     Dosage: UNK
     Route: 048
     Dates: start: 20210401, end: 20210430
  2. FIRDAPSE [Suspect]
     Active Substance: AMIFAMPRIDINE PHOSPHATE
     Dosage: 10 MG, 2X/DAY
     Route: 048
     Dates: start: 20210501, end: 20210504
  3. FIRDAPSE [Suspect]
     Active Substance: AMIFAMPRIDINE PHOSPHATE
     Dosage: 10 MG IN AM, 5 MG AT LUNCH, 10 MG IN EVENING AT SUPPER
     Route: 048
     Dates: start: 20210505, end: 20210508
  4. FIRDAPSE [Suspect]
     Active Substance: AMIFAMPRIDINE PHOSPHATE
     Dosage: 10 MG IN MORNING, 5 MG AT LUNCH, 10 MG AT DINNER, AND 5 MG IN EVENING
     Route: 048
     Dates: start: 20210509, end: 20210512
  5. FIRDAPSE [Suspect]
     Active Substance: AMIFAMPRIDINE PHOSPHATE
     Dosage: 10 MG IN AM, LUNCH, AND DINNER, AND 5 MG AT BEDTIME
     Route: 048
     Dates: start: 20210513, end: 20210516
  6. FIRDAPSE [Suspect]
     Active Substance: AMIFAMPRIDINE PHOSPHATE
     Dosage: 10 MG, 4X/DAY
     Route: 048
     Dates: start: 20210517, end: 2021
  7. FIRDAPSE [Suspect]
     Active Substance: AMIFAMPRIDINE PHOSPHATE
     Dosage: 60 MG, 3X/DAY
     Route: 048
     Dates: start: 2021, end: 2021
  8. FIRDAPSE [Suspect]
     Active Substance: AMIFAMPRIDINE PHOSPHATE
     Dosage: 20 MG, 3X/DAY
     Route: 048
     Dates: start: 2021
  9. FIRDAPSE [Suspect]
     Active Substance: AMIFAMPRIDINE PHOSPHATE
     Dosage: 20 MG, 4X/DAY
     Route: 048
     Dates: end: 2022
  10. FIRDAPSE [Suspect]
     Active Substance: AMIFAMPRIDINE PHOSPHATE
     Dosage: 20 MG, 4X/DAY
     Route: 048
     Dates: start: 2022
  11. TYLENOL EXTRA STRENGTH [Concomitant]
     Active Substance: ACETAMINOPHEN
     Dosage: 500 MG, AS NEEDED
  12. FOSAMAX [Concomitant]
     Active Substance: ALENDRONATE SODIUM
     Dosage: 70 MG, 1X/WEEK
  13. AMOXICILLIN [Concomitant]
     Active Substance: AMOXICILLIN
     Dosage: 500 MG, 3X/DAY
  14. ASPIRIN [Concomitant]
     Active Substance: ASPIRIN
     Dosage: 81 MG, 1X/DAY AT BEDTIME
  15. VITAMIN B COMPLEX [Concomitant]
     Active Substance: CYANOCOBALAMIN\DEXPANTHENOL\NIACINAMIDE\PYRIDOXINE HYDROCHLORIDE\RIBOFLAVIN 5^-PHOSPHATE SODIUM\THIA
     Dosage: 1 TABLET, 1X/DAY
  16. BIOFREEZE [Concomitant]
     Active Substance: MENTHOL
     Dosage: UNK, AS NEEDED
     Route: 061
  17. SYSTANE EYE GEL [Concomitant]
     Dosage: AT BEDTIME
  18. SYSTANE EYEDROPS [Concomitant]
     Active Substance: POLYETHYLENE GLYCOL 400\PROPYLENE GLYCOL
     Dosage: 1 DROP, EACH EYE 2-3X/DAY
     Route: 047
  19. SYSTANE EYEDROPS [Concomitant]
     Active Substance: POLYETHYLENE GLYCOL 400\PROPYLENE GLYCOL
     Dosage: 1 DROP, BOTH EYES, 1X/DAY AT NIGHT
     Route: 047
  20. COMPOUNDED CREAM PAIN MEDICATION [Concomitant]
     Dosage: UNK, UP TO 3X/DAY
  21. VITAMIN B12 [Concomitant]
     Active Substance: CYANOCOBALAMIN
     Dosage: 1000 ?G, 1X/DAY
  22. VITAMIN B12 [Concomitant]
     Active Substance: CYANOCOBALAMIN
     Dosage: 100 ?G, 1X/DAY
  23. VOLTAREN [Concomitant]
     Active Substance: DICLOFENAC SODIUM
     Dosage: UNK, AS NEEDED
     Route: 061
  24. FUROSEMIDE [Concomitant]
     Active Substance: FUROSEMIDE
     Dosage: 3 TABS (60 MG), 2X/DAY
  25. GABAPENTIN [Concomitant]
     Active Substance: GABAPENTIN
     Dosage: 300 MG, 1X/DAY AT BEDTIME
  26. NORCO [Concomitant]
     Active Substance: ACETAMINOPHEN\HYDROCODONE BITARTRATE
     Dosage: UNK, AS NEEDED
  27. FOLIC ACID [Concomitant]
     Active Substance: FOLIC ACID
     Dosage: 5 MG, 1X/DAY
  28. FOLIC ACID [Concomitant]
     Active Substance: FOLIC ACID
     Dosage: 1 MG, 1X/DAY
  29. VITAMIN D3 [Concomitant]
     Active Substance: CHOLECALCIFEROL
     Dosage: 2000 IU, 1X/DAY
  30. VITAMIN D3 [Concomitant]
     Active Substance: CHOLECALCIFEROL
     Dosage: 50 ?G, 1X/DAY
  31. LEVOTHYROXINE SODIUM [Concomitant]
     Active Substance: LEVOTHYROXINE SODIUM
     Dosage: 100 ?G, 1X/DAY
  32. VITAMINS [Concomitant]
     Active Substance: VITAMINS
     Dosage: 1 TABLET, 1X/DAY
  33. NITROSTAT [Concomitant]
     Active Substance: NITROGLYCERIN
     Dosage: 0.4 MG, AS NEEDED
     Route: 060
  34. PROTONIX [Concomitant]
     Active Substance: PANTOPRAZOLE SODIUM
     Dosage: 20 MG, 1X/DAY
  35. POTASSIUM CHLORIDE [Concomitant]
     Active Substance: POTASSIUM CHLORIDE
     Dosage: 20 MEQ, 3X/DAY
  36. PREDNISONE [Concomitant]
     Active Substance: PREDNISONE
     Dosage: 5 MG, 1X/DAY
  37. PREDNISONE [Concomitant]
     Active Substance: PREDNISONE
     Dosage: 20 MG, 1X/DAY
  38. PREDNISONE [Concomitant]
     Active Substance: PREDNISONE
     Dosage: 10 MG, 1X/DAY
  39. SACCHAROMYCES CEREVISIAE [Concomitant]
     Active Substance: SACCHAROMYCES CEREVISIAE
     Dosage: 250 MG, 1X/DAY
  40. SULFASALAZINE [Concomitant]
     Active Substance: SULFASALAZINE
     Dosage: 500 MG, 3X/DAY
  41. REFRESH CLASSIC [Concomitant]
     Active Substance: POLYVINYL ALCOHOL\POVIDONE
     Dosage: 1 DROP BOTH EYES, 4X/DAY AS NEEDED
     Route: 047
  42. SULFADIAZINE [Concomitant]
     Active Substance: SULFADIAZINE
     Dosage: 500 MG, 3X/DAY
  43. TUMS [Concomitant]
     Active Substance: CALCIUM CARBONATE
     Dosage: 500 MG, AS NEEDED
  44. STIOLTO RESPIMAT [Concomitant]
     Active Substance: OLODATEROL HYDROCHLORIDE\TIOTROPIUM BROMIDE MONOHYDRATE
     Dosage: 1 PUFF, 1X/DAY
  45. GAMMAGARD [Concomitant]
     Active Substance: HUMAN IMMUNOGLOBULIN G
     Dosage: 2.5 G, 1X/MONTH
  46. GAMMAGARD [Concomitant]
     Active Substance: HUMAN IMMUNOGLOBULIN G
     Dosage: INCREASED DOSE
  47. ORENCIA [Concomitant]
     Active Substance: ABATACEPT
     Dosage: 125 MG, 1X/WEEK
  48. VALTREX [Concomitant]
     Active Substance: VALACYCLOVIR HYDROCHLORIDE
     Dosage: 500 MG, 2X/DAY
  49. LIDOCAINE VISCOUS [Concomitant]
     Active Substance: LIDOCAINE HYDROCHLORIDE
     Dosage: 5 ML, AS NEEDED
  50. SYSTANE COMPLETE [Concomitant]
     Active Substance: PROPYLENE GLYCOL
     Dosage: 1 DROP, 4X/DAY
  51. XELJANZ [Concomitant]
     Active Substance: TOFACITINIB CITRATE
     Dosage: 5 MG, 2X/DAY

REACTIONS (7)
  - Rib fracture [Recovered/Resolved]
  - Drug ineffective [Not Recovered/Not Resolved]
  - Artificial crown procedure [Recovered/Resolved]
  - Tremor [Recovered/Resolved]
  - Joint dislocation [Recovered/Resolved]
  - Paraesthesia oral [Unknown]
  - Fall [Recovered/Resolved]

NARRATIVE: CASE EVENT DATE: 20210101
